FAERS Safety Report 25856349 (Version 1)
Quarter: 2025Q3

REPORT INFORMATION
  Report Type: Spontaneous
  Country: CN (occurrence: CN)
  Receive Date: 20250928
  Receipt Date: 20250928
  Transmission Date: 20251021
  Serious: Yes (Other)
  Sender: BEIGENE
  Company Number: CN-BEIGENE-BGN-2025-016351

PATIENT
  Age: 68 Year
  Weight: 65 kg

DRUGS (16)
  1. TISLELIZUMAB [Suspect]
     Active Substance: TISLELIZUMAB
     Indication: Oesophageal squamous cell carcinoma
  2. TISLELIZUMAB [Suspect]
     Active Substance: TISLELIZUMAB
  3. TISLELIZUMAB [Suspect]
     Active Substance: TISLELIZUMAB
     Route: 041
  4. TISLELIZUMAB [Suspect]
     Active Substance: TISLELIZUMAB
     Route: 041
  5. TISLELIZUMAB [Suspect]
     Active Substance: TISLELIZUMAB
  6. TISLELIZUMAB [Suspect]
     Active Substance: TISLELIZUMAB
  7. TISLELIZUMAB [Suspect]
     Active Substance: TISLELIZUMAB
     Route: 041
  8. TISLELIZUMAB [Suspect]
     Active Substance: TISLELIZUMAB
     Route: 041
  9. CARBOPLATIN [Suspect]
     Active Substance: CARBOPLATIN
     Indication: Oesophageal squamous cell carcinoma
  10. CARBOPLATIN [Suspect]
     Active Substance: CARBOPLATIN
     Route: 041
  11. CARBOPLATIN [Suspect]
     Active Substance: CARBOPLATIN
  12. CARBOPLATIN [Suspect]
     Active Substance: CARBOPLATIN
     Route: 041
  13. DOCETAXEL [Suspect]
     Active Substance: DOCETAXEL
     Indication: Oesophageal squamous cell carcinoma
     Route: 041
  14. DOCETAXEL [Suspect]
     Active Substance: DOCETAXEL
  15. CAMRELIZUMAB [Suspect]
     Active Substance: CAMRELIZUMAB
     Indication: Oesophageal squamous cell carcinoma
     Route: 041
  16. CAMRELIZUMAB [Suspect]
     Active Substance: CAMRELIZUMAB

REACTIONS (1)
  - Myelosuppression [Recovering/Resolving]
